FAERS Safety Report 7103832-4 (Version None)
Quarter: 2010Q4

REPORT INFORMATION
  Report Type: 
  Country: None (occurrence: None)
  Receive Date: 20101115
  Receipt Date: 20101110
  Transmission Date: 20110411
  Serious: Yes (Hospitalization, Disabling, Other)
  Sender: FDA-Public Use
  Company Number: JP-PFIZER INC-2010126476

PATIENT
  Age: 47 Year
  Sex: Female
  Weight: 37 kg

DRUGS (3)
  1. VFEND [Suspect]
     Indication: SYSTEMIC MYCOSIS
     Dosage: 600 MG, 2X/DAY
     Route: 048
     Dates: start: 20100929, end: 20100930
  2. VFEND [Suspect]
     Dosage: 100 MG/ DAY
     Route: 048
     Dates: start: 20101005, end: 20101007
  3. DIFLUCAN [Concomitant]
     Dosage: UNK
     Route: 048

REACTIONS (9)
  - DIZZINESS [None]
  - DIZZINESS POSTURAL [None]
  - DRUG DISPENSING ERROR [None]
  - DYSPNOEA [None]
  - NAUSEA [None]
  - OVERDOSE [None]
  - PAIN [None]
  - VISUAL IMPAIRMENT [None]
  - VOMITING [None]
